FAERS Safety Report 21028103 (Version 1)
Quarter: 2022Q2

REPORT INFORMATION
  Report Type: Report from Study
  Country: CA (occurrence: CA)
  Receive Date: 20220630
  Receipt Date: 20220630
  Transmission Date: 20220720
  Serious: Yes (Other)
  Sender: FDA-Public Use
  Company Number: CA-ABBVIE-22K-028-4449551-00

PATIENT
  Sex: Female

DRUGS (1)
  1. HUMIRA [Suspect]
     Active Substance: ADALIMUMAB
     Indication: Hidradenitis
     Route: 058
     Dates: start: 20150629, end: 202202

REACTIONS (4)
  - Systemic lupus erythematosus [Unknown]
  - Breast mass [Unknown]
  - Impaired healing [Unknown]
  - Hidradenitis [Not Recovered/Not Resolved]
